FAERS Safety Report 8819374 (Version 1)
Quarter: 2012Q4

REPORT INFORMATION
  Report Type: Spontaneous
  Country: US (occurrence: None)
  Receive Date: 20121004
  Receipt Date: 20121004
  Transmission Date: 20130627
  Serious: Yes (Disabling)
  Sender: FDA-Public Use
  Company Number: None

PATIENT
  Age: 65 Year
  Sex: Female
  Weight: 63.5 kg

DRUGS (1)
  1. MORPHINE SULFATE ER [Suspect]
     Indication: MUSCULOSKELETAL PAIN
     Route: 048
     Dates: start: 20110401, end: 20121003

REACTIONS (16)
  - Agitation [None]
  - Abdominal pain upper [None]
  - Somnolence [None]
  - Chest pain [None]
  - Asthenia [None]
  - Micturition disorder [None]
  - Fatigue [None]
  - Asthenia [None]
  - Rash [None]
  - Urticaria [None]
  - Pruritus [None]
  - Breast pain [None]
  - Musculoskeletal chest pain [None]
  - Chest discomfort [None]
  - Back pain [None]
  - Blood pressure increased [None]
